FAERS Safety Report 12173568 (Version 1)
Quarter: 2016Q1

REPORT INFORMATION
  Report Type: Spontaneous
  Country: US (occurrence: None)
  Receive Date: 20160311
  Receipt Date: 20160311
  Transmission Date: 20160526
  Serious: Yes (Death)
  Sender: FDA-Public Use
  Company Number: None

PATIENT
  Age: 79 Year
  Sex: Male
  Weight: 83.1 kg

DRUGS (1)
  1. WARFARIN [Suspect]
     Active Substance: WARFARIN
     Indication: ATRIAL FIBRILLATION
     Route: 048

REACTIONS (7)
  - Haematochezia [None]
  - Cardio-respiratory arrest [None]
  - Bradycardia [None]
  - Pulse absent [None]
  - Diarrhoea [None]
  - Abdominal pain [None]
  - Hypoxia [None]

NARRATIVE: CASE EVENT DATE: 20150831
